FAERS Safety Report 6198511-4 (Version None)
Quarter: 2009Q2

REPORT INFORMATION
  Report Type: 
  Country: None (occurrence: None)
  Receive Date: 20090521
  Receipt Date: 20090514
  Transmission Date: 20091009
  Serious: Yes (Hospitalization, Other)
  Sender: FDA-Public Use
  Company Number: PHHY2009AU18586

PATIENT
  Sex: Male

DRUGS (6)
  1. EXELON [Suspect]
     Indication: DEMENTIA ALZHEIMER'S TYPE
     Dosage: 3 MG, TID
     Route: 048
  2. EXELON [Suspect]
     Dosage: 3 MG, QD
     Route: 048
  3. EXELON [Suspect]
     Dosage: 3 MG, TID
     Route: 048
  4. ZOLOFT [Concomitant]
     Dosage: 50 MG
  5. ATACAND [Concomitant]
     Dosage: 8 MG
  6. ACTONEL [Concomitant]
     Indication: BONE DISORDER

REACTIONS (4)
  - DIARRHOEA [None]
  - HALLUCINATION, VISUAL [None]
  - SKIN ULCER [None]
  - VOMITING [None]
